FAERS Safety Report 4782162-X (Version None)
Quarter: 2005Q3

REPORT INFORMATION
  Report Type: 
  Country: None (occurrence: None)
  Receive Date: 20050914
  Receipt Date: 20040811
  Transmission Date: 20060218
  Serious: Yes (Life-Threatening, Hospitalization)
  Sender: FDA-Public Use
  Company Number: 163-20785-04080264

PATIENT
  Age: 56 Year
  Sex: Female

DRUGS (4)
  1. THALOMID [Suspect]
     Indication: AMYLOIDOSIS
     Dosage: 200 MG, QD, ORAL
     Route: 048
     Dates: start: 20040201, end: 20040801
  2. THALOMID [Suspect]
     Indication: AMYLOIDOSIS
     Dosage: 200 MG, QD, ORAL
     Route: 048
     Dates: start: 20030101
  3. BIAXIN [Suspect]
     Indication: AMYLOIDOSIS
     Dosage: 500 MG, QD, ORAL
     Route: 048
     Dates: start: 20040801
  4. DEXAMETHASONE [Suspect]
     Indication: AMYLOIDOSIS
     Dosage: 20 MG, Q MONDAY, ORAL
     Route: 048
     Dates: start: 20040801

REACTIONS (2)
  - ABDOMINAL PAIN [None]
  - LARGE INTESTINE PERFORATION [None]
